FAERS Safety Report 7770467-X (Version None)
Quarter: 2011Q3

REPORT INFORMATION
  Report Type: 
  Country: None (occurrence: None)
  Receive Date: 20110922
  Receipt Date: 20101014
  Transmission Date: 20111222
  Serious: No
  Sender: FDA-Public Use
  Company Number: US-ASTRAZENECA-2010SE48656

PATIENT
  Sex: Male

DRUGS (3)
  1. SEROQUEL [Suspect]
     Indication: ANXIETY
     Route: 048
     Dates: start: 20101013
  2. PROZAC [Concomitant]
  3. VALIUM [Concomitant]
     Indication: ANXIETY

REACTIONS (5)
  - FEELING ABNORMAL [None]
  - HEADACHE [None]
  - NECK PAIN [None]
  - ABASIA [None]
  - FATIGUE [None]
